FAERS Safety Report 13520280 (Version 3)
Quarter: 2017Q2

REPORT INFORMATION
  Report Type: Report from Study
  Country: AT (occurrence: AT)
  Receive Date: 20170507
  Receipt Date: 20170628
  Transmission Date: 20170830
  Serious: Yes (Hospitalization, Other)
  Sender: FDA-Public Use
  Company Number: PHHY2017AT063026

PATIENT
  Age: 45 Year
  Sex: Female
  Weight: 69.6 kg

DRUGS (5)
  1. MEKINIST [Suspect]
     Active Substance: TRAMETINIB DIMETHYL SULFOXIDE
     Indication: MALIGNANT MELANOMA
     Dosage: 2 MG, QD (0-0-2)
     Route: 048
     Dates: start: 20160812
  2. DABRAFENIB [Suspect]
     Active Substance: DABRAFENIB
     Dosage: 150 MG, BID  (75 MG 2-0-2)
     Route: 048
     Dates: end: 201706
  3. DABRAFENIB [Suspect]
     Active Substance: DABRAFENIB
     Indication: MALIGNANT MELANOMA
     Dosage: 150 MG, BID (75 MG 2-0-2)
     Route: 048
     Dates: start: 20160812
  4. DABRAFENIB [Suspect]
     Active Substance: DABRAFENIB
     Dosage: 150 MG, BID  (75 MG 2-0-2)
     Route: 048
     Dates: start: 20170214, end: 20170311
  5. MEKINIST [Suspect]
     Active Substance: TRAMETINIB DIMETHYL SULFOXIDE
     Dosage: 2 MG, QD (1-0-0)
     Route: 048
     Dates: start: 20170214, end: 201706

REACTIONS (8)
  - Pancytopenia [Recovered/Resolved]
  - Infection susceptibility increased [Unknown]
  - Back pain [Recovered/Resolved]
  - Cerebral haemorrhage [Recovered/Resolved]
  - General physical health deterioration [Unknown]
  - Liver function test increased [Recovered/Resolved]
  - Pyrexia [Recovered/Resolved]
  - Dermatitis acneiform [Recovered/Resolved]

NARRATIVE: CASE EVENT DATE: 201608
